FAERS Safety Report 25413850 (Version 1)
Quarter: 2025Q2

REPORT INFORMATION
  Report Type: Spontaneous
  Country: US (occurrence: US)
  Receive Date: 20250609
  Receipt Date: 20250609
  Transmission Date: 20250716
  Serious: Yes (Other)
  Sender: AMGEN
  Company Number: US-AMGEN-USASP2025109881

PATIENT

DRUGS (2)
  1. SODIUM PHENYLBUTYRATE [Suspect]
     Active Substance: SODIUM PHENYLBUTYRATE
     Indication: Urea cycle disorder
     Dosage: UNK UNK, TID (MG/KG/DAY)
     Route: 065
  2. GLYCEROL PHENYLBUTYRATE [Suspect]
     Active Substance: GLYCEROL PHENYLBUTYRATE
     Indication: Urea cycle disorder
     Dosage: UNK UNK, TID (MG/KG/DAY)
     Route: 065

REACTIONS (27)
  - Encephalopathy [Unknown]
  - Gastrooesophageal reflux disease [Unknown]
  - Chills [Unknown]
  - Increased appetite [Unknown]
  - Dyspepsia [Unknown]
  - Dizziness [Unknown]
  - Dysgeusia [Unknown]
  - Abnormal faeces [Unknown]
  - Diarrhoea [Unknown]
  - Dry mouth [Unknown]
  - Dehydration [Unknown]
  - Clonus [Unknown]
  - Nystagmus [Unknown]
  - Tremor [Unknown]
  - Hunger [Unknown]
  - Herpes simplex [Unknown]
  - Food aversion [Unknown]
  - Laryngeal pain [Unknown]
  - Cough [Unknown]
  - Rhinorrhoea [Unknown]
  - Soft tissue disorder [Unknown]
  - Skin odour abnormal [Unknown]
  - Weight increased [Unknown]
  - Back pain [Unknown]
  - Nausea [Unknown]
  - Constipation [Unknown]
  - Abdominal pain [Unknown]
